FAERS Safety Report 7291529-X (Version None)
Quarter: 2011Q1

REPORT INFORMATION
  Report Type: 
  Country: None (occurrence: None)
  Receive Date: 20110201
  Receipt Date: 20110124
  Transmission Date: 20110831
  Serious: Yes (Hospitalization)
  Sender: FDA-Public Use
  Company Number: GER/GER/11/0017218

PATIENT
  Age: 70 Year
  Sex: Male
  Weight: 103 kg

DRUGS (7)
  1. CITALOPRAM (CITALOPRAM0 [Suspect]
     Indication: DEPRESSION
     Dosage: ORAL
     Route: 048
     Dates: start: 20090101
  2. RAMIPRIL [Concomitant]
  3. METFORMIN HCL [Suspect]
     Indication: DIABETES MELLITUS
     Dosage: 1000 MG, 2 IN 1 D, ORAL
     Route: 048
     Dates: start: 20090101
  4. GABAPENTIN [Concomitant]
  5. ISCOVER [Suspect]
     Indication: PLATELET AGGREGATION
     Dosage: 1 DOSAGE FORMS, 1 IN 1 D, ORAL
     Route: 048
     Dates: start: 20090101
  6. BACLOFEN [Suspect]
     Indication: MUSCLE SPASTICITY
     Dosage: 0.5 DOAGE FORMS, 3 IN 1 D, ORAL
     Route: 048
     Dates: start: 20090101
  7. METOPROLOL SUCCINATE [Suspect]
     Indication: HYPERTENSION
     Dosage: 1 DOSAGE FORMS, 1 IN 1 D,
     Dates: start: 20090101

REACTIONS (1)
  - GASTRIC ULCER [None]
